FAERS Safety Report 7314018-2 (Version None)
Quarter: 2011Q1

REPORT INFORMATION
  Report Type: 
  Country: None (occurrence: None)
  Receive Date: 20110225
  Receipt Date: 20110216
  Transmission Date: 20110831
  Serious: Yes (Hospitalization)
  Sender: FDA-Public Use
  Company Number: US-JNJFOC-20110205713

PATIENT
  Sex: Female
  Weight: 72.58 kg

DRUGS (6)
  1. METHOTREXATE [Concomitant]
     Indication: RHEUMATOID ARTHRITIS
     Route: 048
  2. TOPROL-XL [Concomitant]
     Indication: BLOOD PRESSURE
     Route: 048
  3. SIMPONI [Suspect]
     Indication: RHEUMATOID ARTHRITIS
     Route: 058
  4. PREDNISONE [Concomitant]
     Indication: INFLAMMATION
     Route: 048
  5. LIPITOR [Concomitant]
     Indication: BLOOD CHOLESTEROL
     Route: 048
  6. PLAVIX [Concomitant]
     Route: 048

REACTIONS (3)
  - PNEUMONIA [None]
  - COUGH [None]
  - CORONARY ARTERY OCCLUSION [None]
